FAERS Safety Report 9547010 (Version 1)
Quarter: 2013Q2

REPORT INFORMATION
  Report Type: Spontaneous
  Country: US (occurrence: None)
  Receive Date: 20130524
  Receipt Date: 20130524
  Transmission Date: 20140414
  Serious: No
  Sender: FDA-Public Use
  Company Number: PHEH2012US024524

PATIENT
  Age: 45 Year
  Sex: Male
  Weight: 71.2 kg

DRUGS (5)
  1. GILENYA (FINGOLIMOD) [Suspect]
     Indication: MULTIPLE SCLEROSIS
     Route: 048
     Dates: start: 20110912
  2. BACLOFEN [Concomitant]
  3. ENABLEX (DARIFENACIN HYDROBROMIDE) [Concomitant]
  4. SENNA/USA/(SENNA ALEXANDRIA) [Concomitant]
  5. COLACE [Concomitant]

REACTIONS (1)
  - Constipation [None]
